FAERS Safety Report 10190871 (Version 1)
Quarter: 2014Q2

REPORT INFORMATION
  Report Type: Report from Study
  Country: US (occurrence: US)
  Receive Date: 20140523
  Receipt Date: 20140523
  Transmission Date: 20141212
  Serious: Yes (Hospitalization)
  Sender: FDA-Public Use
  Company Number: US-ROCHE-1403877

PATIENT
  Sex: 0

DRUGS (8)
  1. RITUXIMAB [Suspect]
     Indication: LYMPHOMA
     Route: 065
  2. ETOPOSIDE PHOSPHATE [Suspect]
     Indication: LYMPHOMA
     Route: 065
  3. CYCLOPHOSPHAMIDE [Suspect]
     Indication: LYMPHOMA
     Route: 065
  4. VINCRISTINE [Suspect]
     Indication: LYMPHOMA
     Route: 065
  5. DEXAMETHASONE [Suspect]
     Indication: LYMPHOMA
     Route: 065
  6. IFOSFAMIDE [Suspect]
     Indication: LYMPHOMA
     Route: 065
  7. CARBOPLATIN [Suspect]
     Indication: LYMPHOMA
     Route: 065
  8. DOXORUBICIN [Suspect]
     Indication: LYMPHOMA
     Route: 065

REACTIONS (8)
  - Febrile neutropenia [Unknown]
  - Pyrexia [Unknown]
  - Syncope [Unknown]
  - Nausea [Unknown]
  - Vomiting [Unknown]
  - Hypotension [Unknown]
  - Cellulitis [Unknown]
  - Pneumonia [Unknown]
